FAERS Safety Report 10468866 (Version 26)
Quarter: 2018Q1

REPORT INFORMATION
  Report Type: Report from Study
  Country: CA (occurrence: CA)
  Receive Date: 20140923
  Receipt Date: 20180227
  Transmission Date: 20180508
  Serious: Yes (Hospitalization, Other)
  Sender: FDA-Public Use
  Company Number: CA-ROCHE-1101096

PATIENT
  Age: 33 Year
  Sex: Female
  Weight: 53 kg

DRUGS (19)
  1. ACTEMRA [Suspect]
     Active Substance: TOCILIZUMAB
     Route: 042
     Dates: start: 20150825, end: 20170504
  2. ACYCLOVIR. [Concomitant]
     Active Substance: ACYCLOVIR
  3. LEUCOVORIN. [Concomitant]
     Active Substance: LEUCOVORIN
  4. CYMBALTA [Concomitant]
     Active Substance: DULOXETINE HYDROCHLORIDE
  5. ACTEMRA [Suspect]
     Active Substance: TOCILIZUMAB
     Route: 042
     Dates: start: 20130813
  6. OXYCOCET [Concomitant]
     Active Substance: ACETAMINOPHEN\OXYCODONE HYDROCHLORIDE
  7. HYDROMORPHONE [Concomitant]
     Active Substance: HYDROMORPHONE
  8. GABAPENTIN. [Concomitant]
     Active Substance: GABAPENTIN
     Route: 065
  9. ACTEMRA [Suspect]
     Active Substance: TOCILIZUMAB
     Route: 042
     Dates: start: 20140714
  10. SEROQUEL [Concomitant]
     Active Substance: QUETIAPINE FUMARATE
  11. LEUCOVORIN. [Concomitant]
     Active Substance: LEUCOVORIN
  12. EFFEXOR [Concomitant]
     Active Substance: VENLAFAXINE HYDROCHLORIDE
  13. METHOTREXATE. [Suspect]
     Active Substance: METHOTREXATE
     Indication: PRODUCT USED FOR UNKNOWN INDICATION
     Route: 058
  14. SEROQUEL [Concomitant]
     Active Substance: QUETIAPINE FUMARATE
  15. FAMOTIDINE. [Concomitant]
     Active Substance: FAMOTIDINE
  16. ACTEMRA [Suspect]
     Active Substance: TOCILIZUMAB
     Indication: RHEUMATOID ARTHRITIS
     Route: 042
     Dates: start: 20120719, end: 20170504
  17. VENLAFAXINE [Concomitant]
     Active Substance: VENLAFAXINE HYDROCHLORIDE
  18. PLENDIL [Concomitant]
     Active Substance: FELODIPINE
  19. AVIANE [Concomitant]
     Active Substance: ETHINYL ESTRADIOL\LEVONORGESTREL

REACTIONS (25)
  - Increased tendency to bruise [Unknown]
  - Burning sensation [Not Recovered/Not Resolved]
  - Urinary tract infection [Not Recovered/Not Resolved]
  - Nasopharyngitis [Not Recovered/Not Resolved]
  - Ingrowing nail [Unknown]
  - Drug ineffective [Unknown]
  - Gastritis [Unknown]
  - Stomatitis [Unknown]
  - Malaise [Unknown]
  - Suicidal ideation [Unknown]
  - Influenza [Recovered/Resolved]
  - Pneumonia [Recovered/Resolved]
  - Gastrointestinal disorder [Unknown]
  - Anxiety [Unknown]
  - Bronchitis [Unknown]
  - Arthralgia [Not Recovered/Not Resolved]
  - Dehydration [Unknown]
  - Arthralgia [Not Recovered/Not Resolved]
  - Sinusitis [Unknown]
  - Pain [Not Recovered/Not Resolved]
  - Pain in extremity [Not Recovered/Not Resolved]
  - Weight decreased [Unknown]
  - Nasopharyngitis [Unknown]
  - Tonsillitis [Unknown]
  - Cystitis [Unknown]

NARRATIVE: CASE EVENT DATE: 20120719
